FAERS Safety Report 22354026 (Version 1)
Quarter: 2023Q2

REPORT INFORMATION
  Report Type: Spontaneous
  Country: US (occurrence: None)
  Receive Date: 20230522
  Receipt Date: 20230522
  Transmission Date: 20230722
  Serious: Yes (Hospitalization)
  Sender: FDA-Public Use
  Company Number: None

PATIENT
  Age: 53 Year
  Sex: Male
  Weight: 104.85 kg

DRUGS (1)
  1. .DELTA.8-TETRAHYDROCANNABINOL\HERBALS [Suspect]
     Active Substance: .DELTA.8-TETRAHYDROCANNABINOL\HERBALS
     Indication: Insomnia
     Dosage: OTHER QUANTITY : 1 GUMMY;?FREQUENCY : AT BEDTIME;?
     Route: 048
     Dates: start: 20230518

REACTIONS (7)
  - Psychotic disorder [None]
  - Vomiting [None]
  - Dyspnoea [None]
  - Abdominal pain upper [None]
  - Hallucination, visual [None]
  - Dizziness [None]
  - Fatigue [None]

NARRATIVE: CASE EVENT DATE: 20230518
